FAERS Safety Report 7246911-3 (Version None)
Quarter: 2011Q1

REPORT INFORMATION
  Report Type: 
  Country: None (occurrence: None)
  Receive Date: 20110127
  Receipt Date: 20110121
  Transmission Date: 20110831
  Serious: Yes (Hospitalization, Disabling, Other)
  Sender: FDA-Public Use
  Company Number: JP-BRISTOL-MYERS SQUIBB COMPANY-15347354

PATIENT
  Age: 78 Year
  Sex: Female

DRUGS (10)
  1. TAKEPRON [Concomitant]
  2. ZYLORIC [Concomitant]
  3. LASIX [Concomitant]
     Indication: PROPHYLAXIS
     Dates: start: 20100326
  4. CARVEDILOL [Concomitant]
     Dosage: 11MAY-6JUL10 5MG/D  06JUL10 2.5MG/D
     Dates: start: 20100511
  5. PRIMOBOLAN [Concomitant]
  6. ALDACTONE [Concomitant]
     Indication: PROPHYLAXIS
     Dates: start: 20100326
  7. DIGOXIN [Concomitant]
     Indication: PROPHYLAXIS
     Dates: start: 20100326
  8. MYSLEE [Concomitant]
     Dates: end: 20100511
  9. IRBETAN [Suspect]
     Indication: HYPERTENSION
     Dosage: 19AUG09-21JUN10 50 MG REDUCED TO 25MG FROM 22JUN2010
     Route: 048
     Dates: start: 20090819
  10. RIZE [Concomitant]

REACTIONS (3)
  - ATRIAL FIBRILLATION [None]
  - CARDIAC FAILURE CHRONIC [None]
  - CEREBELLAR INFARCTION [None]
